FAERS Safety Report 5125938-1 (Version None)
Quarter: 2006Q4

REPORT INFORMATION
  Report Type: 
  Country: None (occurrence: None)
  Receive Date: 20061012
  Receipt Date: 20060823
  Transmission Date: 20070319
  Serious: Yes (Hospitalization, Other)
  Sender: FDA-Public Use
  Company Number: US-BAYER-200615243BWH

PATIENT
  Age: 79 Year
  Sex: Male
  Weight: 87 kg

DRUGS (18)
  1. NEXAVAR [Suspect]
     Indication: RENAL CELL CARCINOMA STAGE UNSPECIFIED
     Dosage: TOTAL DAILY DOSE: 800 MG  UNIT DOSE: 200 MG
     Route: 048
     Dates: start: 20060804
  2. COREG [Concomitant]
     Route: 048
  3. DIOVAN [Concomitant]
     Route: 048
  4. PROTONIX [Concomitant]
     Dosage: TOTAL DAILY DOSE: 40 MG
  5. VYTORIN [Concomitant]
  6. FENTANYL [Concomitant]
     Route: 062
  7. LASIX [Concomitant]
     Dosage: TOTAL DAILY DOSE: 20 MG
  8. PLAVIX [Concomitant]
     Dosage: TOTAL DAILY DOSE: 75 MG
  9. ASPIRIN [Concomitant]
  10. NORCO [Concomitant]
  11. EPOGEN [Concomitant]
  12. TYLENOL W/ CODEINE NO. 3 [Concomitant]
  13. HYDROCHLOROTHIAZIDE [Concomitant]
     Dosage: TOTAL DAILY DOSE: 50 MG
  14. PROTONIX [Concomitant]
     Dosage: TOTAL DAILY DOSE: 40 MG
  15. COQ10 [Concomitant]
  16. IRON SUPPLEMENT [Concomitant]
  17. M.V.I. [Concomitant]
  18. FISH OIL SUPPLEMENT [Concomitant]

REACTIONS (11)
  - ANOREXIA [None]
  - BREATH SOUNDS ABNORMAL [None]
  - CARDIAC MURMUR [None]
  - DYSPNOEA [None]
  - EJECTION FRACTION DECREASED [None]
  - EXTENSOR PLANTAR RESPONSE [None]
  - FALL [None]
  - GOUT [None]
  - MYOCARDIAL INFARCTION [None]
  - PERONEAL NERVE PALSY [None]
  - VENTRICULAR DYSFUNCTION [None]
